FAERS Safety Report 6929354-9 (Version None)
Quarter: 2010Q3

REPORT INFORMATION
  Report Type: 
  Country: None (occurrence: None)
  Receive Date: 20100818
  Receipt Date: 20100806
  Transmission Date: 20110219
  Serious: Yes (Other)
  Sender: FDA-Public Use
  Company Number: US-JNJFOC-20100502714

PATIENT
  Age: 3 Year
  Sex: Male
  Weight: 34 kg

DRUGS (6)
  1. CONCENTRATED TYLENOL INFANT DROPS [Suspect]
  2. CONCENTRATED TYLENOL INFANT DROPS [Suspect]
     Indication: PRODUCT USED FOR UNKNOWN INDICATION
  3. CHILDREN'S TYLENOL PLUS COLD [Suspect]
     Indication: PRODUCT USED FOR UNKNOWN INDICATION
  4. CHILDREN'S ZYRTEC ALLERGY [Suspect]
     Indication: PRODUCT USED FOR UNKNOWN INDICATION
  5. CHILDREN'S MOTRIN [Suspect]
  6. CHILDREN'S MOTRIN [Suspect]
     Indication: PYREXIA

REACTIONS (2)
  - BACTERIAL INFECTION [None]
  - PRODUCT QUALITY ISSUE [None]
